FAERS Safety Report 7357539-9 (Version None)
Quarter: 2011Q1

REPORT INFORMATION
  Report Type: 
  Country: None (occurrence: None)
  Receive Date: 20110317
  Receipt Date: 20110218
  Transmission Date: 20110831
  Serious: Yes (Death, Other)
  Sender: FDA-Public Use
  Company Number: US-BAYER-201011561NA

PATIENT
  Sex: Female
  Weight: 80.726 kg

DRUGS (22)
  1. DARVOCET-N 100 [Concomitant]
     Dosage: UNK UNK, PRN
     Route: 048
  2. ASPIRIN [Concomitant]
     Dosage: UNK UNK, QD
     Route: 048
  3. EPINEPHRINE [Concomitant]
     Dosage: UNK
     Route: 042
     Dates: start: 20050920
  4. TRASYLOL [Suspect]
     Dosage: 50 CC/HR
     Dates: end: 20050920
  5. NITROGLYCERIN [Concomitant]
     Dosage: UNK
     Route: 042
     Dates: start: 20050920
  6. EPINEPHRINE [Concomitant]
     Dosage: 2 AMPS
     Route: 042
     Dates: start: 20050920
  7. CALCIUM CHLORIDE [Concomitant]
     Dosage: 1 AMP, UNK
     Route: 042
     Dates: start: 20050920
  8. SODIUM BICARBONATE [Concomitant]
     Dosage: 2 AMPS, UNK
     Route: 042
     Dates: start: 20050920
  9. TRASYLOL [Suspect]
     Indication: CORONARY ARTERY BYPASS
     Dosage: TEST DOSE
     Dates: start: 20050920
  10. ALTACE [Concomitant]
     Dosage: 5 MG, QD
     Route: 048
  11. ISOFLURANE [Concomitant]
     Dosage: UNK
     Route: 042
     Dates: start: 20050920
  12. MIDAZOLAM [Concomitant]
     Dosage: UNK
     Route: 042
     Dates: start: 20050920
  13. CEFAZOLIN [Concomitant]
     Dosage: UNK
     Route: 042
     Dates: start: 20050920
  14. TRASYLOL [Suspect]
     Dosage: 200 CC, LOADING DOSE
  15. IMDUR [Concomitant]
     Dosage: 30 MG, QD
     Route: 048
  16. PITRESSIN [Concomitant]
     Dosage: UNK
     Route: 042
     Dates: start: 20050920
  17. ALFENTANIL [Concomitant]
     Dosage: UNK
     Route: 042
     Dates: start: 20050920
  18. ROCURONIUM BROMIDE [Concomitant]
     Dosage: UNK
     Route: 042
     Dates: start: 20050920
  19. METFORMIN HCL [Concomitant]
     Dosage: 500 MG, TWICE DAILY
     Route: 048
  20. LIPITOR [Concomitant]
     Dosage: UNK UNK, UNK
     Route: 048
  21. HEPARIN [Concomitant]
     Dosage: 25000 U, UNK
     Route: 042
     Dates: start: 20050920
  22. DOPAMINE [Concomitant]
     Dosage: UNK
     Route: 042
     Dates: start: 20050920

REACTIONS (14)
  - PAIN [None]
  - CARDIAC DISORDER [None]
  - ORGAN FAILURE [None]
  - ANHEDONIA [None]
  - RENAL IMPAIRMENT [None]
  - FEAR [None]
  - INJURY [None]
  - RENAL INJURY [None]
  - DEATH [None]
  - RENAL FAILURE [None]
  - ANXIETY [None]
  - DEPRESSION [None]
  - CEREBROVASCULAR ACCIDENT [None]
  - UNEVALUABLE EVENT [None]
